FAERS Safety Report 15872039 (Version 1)
Quarter: 2019Q1

REPORT INFORMATION
  Report Type: Other
  Country: US (occurrence: US)
  Receive Date: 20190126
  Receipt Date: 20190126
  Transmission Date: 20190417
  Serious: Yes (Other)
  Sender: FDA-Public Use
  Company Number: US-ACORDA-ACO_147551_2018

PATIENT
  Age: 64 Year
  Sex: Female
  Weight: 47.17 kg

DRUGS (2)
  1. AMPYRA [Suspect]
     Active Substance: DALFAMPRIDINE
     Indication: PRODUCT USED FOR UNKNOWN INDICATION
     Dosage: UNK
     Route: 048
     Dates: start: 2009
  2. AMPYRA [Suspect]
     Active Substance: DALFAMPRIDINE
     Dosage: UNK
     Route: 048
     Dates: end: 20180228

REACTIONS (4)
  - Therapy cessation [Unknown]
  - Muscle spasticity [Unknown]
  - Memory impairment [Unknown]
  - Abdominal operation [Unknown]

NARRATIVE: CASE EVENT DATE: 20180228
